FAERS Safety Report 24350956 (Version 2)
Quarter: 2025Q1

REPORT INFORMATION
  Report Type: Spontaneous
  Country: JP (occurrence: JP)
  Receive Date: 20240923
  Receipt Date: 20250203
  Transmission Date: 20250409
  Serious: Yes (Other)
  Sender: Phathom Pharmaceuticals
  Company Number: JP-PHATHOM PHARMACEUTICALS INC.-2024PHT00886

PATIENT
  Age: 7 Decade
  Sex: Male

DRUGS (1)
  1. VONOPRAZAN FUMARATE [Suspect]
     Active Substance: VONOPRAZAN FUMARATE
     Indication: Gastrooesophageal reflux disease
     Route: 048

REACTIONS (1)
  - Barrett^s oesophagus [Unknown]

NARRATIVE: CASE EVENT DATE: 20240827
